FAERS Safety Report 7627869-1 (Version None)
Quarter: 2011Q3

REPORT INFORMATION
  Report Type: 
  Country: None (occurrence: None)
  Receive Date: 20110721
  Receipt Date: 20110714
  Transmission Date: 20111222
  Serious: Yes (Hospitalization, Other)
  Sender: FDA-Public Use
  Company Number: US-MERCK-1103USA02684

PATIENT
  Age: 65 Year
  Sex: Female
  Weight: 51 kg

DRUGS (17)
  1. ALENDRONATE SODIUM [Suspect]
     Indication: OSTEOPENIA
     Route: 048
     Dates: start: 20081101, end: 20090216
  2. INDERAL [Concomitant]
     Indication: VENTRICULAR EXTRASYSTOLES
     Route: 065
     Dates: start: 20020101
  3. OS-CAL [Concomitant]
     Route: 065
     Dates: start: 20020101, end: 20090101
  4. SYNTHROID [Concomitant]
     Route: 065
  5. ZYRTEC [Concomitant]
     Indication: CHRONIC SINUSITIS
     Route: 065
  6. FOSAMAX [Suspect]
     Indication: OSTEOPENIA
     Route: 048
     Dates: start: 20020201
  7. FOSAMAX [Suspect]
     Route: 048
     Dates: start: 20080201
  8. FOSAMAX [Suspect]
     Route: 048
     Dates: start: 20080201
  9. VITAMIN D (UNSPECIFIED) [Concomitant]
     Route: 065
     Dates: start: 20020101, end: 20090101
  10. METFORMIN [Concomitant]
     Indication: TYPE 2 DIABETES MELLITUS
     Route: 065
  11. ACTOS [Concomitant]
     Route: 065
  12. FOSAMAX [Suspect]
     Indication: OSTEOPOROSIS
     Route: 048
     Dates: start: 20020201
  13. ACTONEL [Suspect]
     Indication: OSTEOPENIA
     Route: 065
     Dates: start: 20090201
  14. CELEBREX [Concomitant]
     Route: 065
  15. ZYRTEC [Concomitant]
     Indication: RHINITIS ALLERGIC
     Route: 065
  16. POTASSIUM CHLORIDE [Concomitant]
     Route: 065
  17. ARIXTRA [Concomitant]
     Route: 058
     Dates: start: 20090201, end: 20090201

REACTIONS (22)
  - SINUS DISORDER [None]
  - HYPOAESTHESIA [None]
  - ARTHROPOD BITE [None]
  - STRESS ULCER [None]
  - DYSPNOEA [None]
  - OSTEOARTHRITIS [None]
  - ABDOMINAL TENDERNESS [None]
  - CATARACT [None]
  - PAIN [None]
  - TENDON DISORDER [None]
  - LOW TURNOVER OSTEOPATHY [None]
  - DENTAL CARIES [None]
  - MULTIPLE MYELOMA [None]
  - GASTROOESOPHAGEAL REFLUX DISEASE [None]
  - DEVICE DISLOCATION [None]
  - FEMUR FRACTURE [None]
  - SPINAL COLUMN STENOSIS [None]
  - PARAESTHESIA [None]
  - FALL [None]
  - ARTHRITIS [None]
  - BLOOD UREA INCREASED [None]
  - HYPERTENSION [None]
